FAERS Safety Report 4830447-0 (Version None)
Quarter: 2005Q4

REPORT INFORMATION
  Report Type: 
  Country: None (occurrence: None)
  Receive Date: 20051117
  Receipt Date: 20050907
  Transmission Date: 20060501
  Serious: Yes (Hospitalization)
  Sender: FDA-Public Use
  Company Number: US-ROCHE-416826

PATIENT
  Age: 54 Year
  Sex: Female
  Weight: 110.7 kg

DRUGS (21)
  1. RIBAVIRIN [Suspect]
     Dosage: 400MG AM, 400 MG PM
     Route: 048
     Dates: start: 20040720, end: 20050207
  2. PEG-INTERFERON ALFA 2A (RO 25-8310) [Suspect]
     Route: 058
     Dates: start: 20040720, end: 20050202
  3. PEG-INTERFERON ALFA 2A (RO 25-8310) [Suspect]
     Route: 058
     Dates: start: 20050223
  4. TOPRAL [Concomitant]
     Indication: HYPERTENSION
     Dosage: DOSE INCREASED FROM 100 MG TO 200 MG ON 24 APRIL 2005.
     Dates: start: 20020615
  5. INSULIN [Concomitant]
     Dosage: DOSE CHANGED TO 2.5 MG TWICE DAILY ON 24 APRIL 2005 (PREVIOUSLY 15 UNITS).
     Dates: start: 20010515
  6. TEVETEN HCT [Concomitant]
     Dosage: STARTED WITH TDD OF 15 MCG PER DAY, AS OF 03 FEB 2005 DOSE CHANGED TO 600 MG PER DAY.
     Dates: start: 20010415, end: 20050424
  7. DARVOCET [Concomitant]
     Dates: start: 20021115, end: 20050424
  8. ZOLOFT [Concomitant]
     Dosage: AS OF 03 DEC 2004 INCREASED TO 50 MG PER DAY.
     Dates: start: 20041019
  9. TOPROL-XL [Concomitant]
     Dosage: INCREASED DOSAGE AFTER ONSET OF GRAND MAL SEIZURE.
     Dates: start: 20011212
  10. PROPOXYPHENE NAPSYLATE [Concomitant]
     Dosage: TOTAL DAILY DOSE REPORTED AS 100/65MG.
     Dates: start: 20000615, end: 20050424
  11. PROTONIX [Concomitant]
     Dates: start: 20040810, end: 20050424
  12. LEXAPRO [Concomitant]
     Dates: start: 20040810, end: 20050424
  13. AUGMENTIN [Concomitant]
     Dates: start: 20041203, end: 20041210
  14. FOLIC ACID [Concomitant]
     Dates: start: 20041203
  15. MAGNESIUM OXIDE [Concomitant]
     Dates: start: 20041203
  16. NEUTRA-PHOS [Concomitant]
     Dosage: TWO PACKS DAILY.
     Dates: start: 20041203
  17. PREVACID [Concomitant]
     Dates: start: 20041203
  18. NPH INSULIN [Concomitant]
     Dates: start: 20050202
  19. METOPROLOL [Concomitant]
     Dates: start: 20050202
  20. CAPTOPRIL [Concomitant]
     Dates: start: 20050202
  21. ATENOLOL [Concomitant]
     Dates: start: 20050207

REACTIONS (9)
  - BLOOD GLUCOSE INCREASED [None]
  - DIZZINESS [None]
  - EPISTAXIS [None]
  - FACE INJURY [None]
  - FALL [None]
  - NOCTURIA [None]
  - POLYURIA [None]
  - RHINORRHOEA [None]
  - VERTIGO [None]
